FAERS Safety Report 9475651 (Version 1)
Quarter: 2013Q3

REPORT INFORMATION
  Report Type: Spontaneous
  Country: US (occurrence: None)
  Receive Date: 20130809
  Receipt Date: 20130809
  Transmission Date: 20140515
  Serious: Yes (Other)
  Sender: FDA-Public Use
  Company Number: 2013035091

PATIENT
  Sex: Female
  Weight: 40.19 kg

DRUGS (2)
  1. PRIVIGEN [Suspect]
     Indication: IMMUNODEFICIENCY COMMON VARIABLE
     Dosage: 20 GM, 1X/4 WEEKS INTRAVENOUS (NOT OTHERWISE SPECIFIED)
     Route: 042
  2. PRIVIGEN [Suspect]
     Indication: MASTOIDITIS
     Dosage: 20 GM, 1X/4 WEEKS INTRAVENOUS (NOT OTHERWISE SPECIFIED)
     Route: 042

REACTIONS (3)
  - Nasopharyngitis [None]
  - Sinusitis [None]
  - Urinary tract infection [None]
